FAERS Safety Report 18839349 (Version 2)
Quarter: 2021Q1

REPORT INFORMATION
  Report Type: Report from Study
  Country: BR (occurrence: BR)
  Receive Date: 20210203
  Receipt Date: 20210219
  Transmission Date: 20210419
  Serious: Yes (Other)
  Sender: FDA-Public Use
  Company Number: NVSC2021BR022470

PATIENT
  Sex: Male

DRUGS (8)
  1. LANTUS [Concomitant]
     Active Substance: INSULIN GLARGINE
     Indication: DIABETES MELLITUS
     Dosage: 100 MG, APPLYS WHEN BLOOD GLUCOSE HIGH
     Route: 065
  2. TOPAZOL [Concomitant]
     Indication: THYROID DISORDER
     Dosage: 5 MG, QD
     Route: 048
  3. DIOVAN [Suspect]
     Active Substance: VALSARTAN
     Indication: HYPERTENSION
     Dosage: 80 MG, BID, ABOUT 4 OR 5 YEARS AGO (1 IN MORNING AND 01 IN NIGHT)
     Route: 065
  4. AAS PROTECT [Concomitant]
     Active Substance: ASPIRIN
     Indication: PROPHYLAXIS
     Dosage: 100 MG, QD
     Route: 048
  5. ANCORON [Concomitant]
     Active Substance: AMIODARONE HYDROCHLORIDE
     Indication: CARDIAC DISORDER
     Dosage: 200 MG ON MONDAY, WEDNESDAY AND FRIDAY
     Route: 048
  6. AMLODIPINE [Concomitant]
     Active Substance: AMLODIPINE BESYLATE
     Indication: CARDIAC DISORDER
     Dosage: 2.5 MG, QD AT NIGHT
     Route: 048
  7. QUEROPAX [Concomitant]
     Active Substance: QUETIAPINE FUMARATE
     Indication: SLEEP DISORDER
     Dosage: 5 MG, ONLY WHEN IS VERY AGITATED
     Route: 048
  8. GALVUS MET [Suspect]
     Active Substance: METFORMIN HYDROCHLORIDE\VILDAGLIPTIN
     Indication: DIABETES MELLITUS
     Dosage: 1 DF (50MG+ 100MG), QD IN THE MORNING
     Route: 048

REACTIONS (10)
  - Syncope [Recovered/Resolved with Sequelae]
  - Dementia Alzheimer^s type [Not Recovered/Not Resolved]
  - Femur fracture [Recovered/Resolved]
  - Asthenia [Unknown]
  - Tibia fracture [Recovered/Resolved with Sequelae]
  - Neoplasm malignant [Unknown]
  - Dizziness [Unknown]
  - Presyncope [Recovered/Resolved with Sequelae]
  - Head injury [Not Recovered/Not Resolved]
  - Memory impairment [Not Recovered/Not Resolved]
